FAERS Safety Report 6712271-7 (Version None)
Quarter: 2010Q2

REPORT INFORMATION
  Report Type: 
  Country: None (occurrence: None)
  Receive Date: 20100505
  Receipt Date: 20100423
  Transmission Date: 20101027
  Serious: Yes (Hospitalization, Other)
  Sender: FDA-Public Use
  Company Number: PL-ELI_LILLY_AND_COMPANY-PL201003007238

PATIENT
  Age: 20 Year
  Sex: Female
  Weight: 54 kg

DRUGS (10)
  1. OLANZAPINE [Suspect]
     Indication: PSYCHOTIC DISORDER
     Dates: start: 20080101
  2. OLANZAPINE [Suspect]
     Dosage: 17.5 MG, DAILY (1/D)
     Dates: end: 20090316
  3. OLANZAPINE [Suspect]
     Dosage: 2.5 MG, DAILY (1/D)
     Dates: start: 20090326
  4. ZYPREXA [Suspect]
     Indication: SCHIZOPHRENIA, PARANOID TYPE
     Dosage: 10 MG, UNK
     Route: 048
     Dates: start: 20090511, end: 20100320
  5. ZYPREXA [Suspect]
     Dates: start: 20100101
  6. LITHIUM CARBONATE [Concomitant]
     Indication: PSYCHOTIC DISORDER
  7. AMISULPRIDE [Concomitant]
     Indication: PSYCHOTIC DISORDER
  8. ABILIFY [Concomitant]
     Indication: SCHIZOPHRENIA
     Dosage: 15 MG, UNK
     Route: 048
     Dates: end: 20090510
  9. PROPRANOLOL [Concomitant]
     Indication: TREMOR
     Dosage: 10 MG, UNK
     Route: 048
     Dates: start: 20091110, end: 20100106
  10. SEROQUEL [Concomitant]
     Indication: PSYCHOTIC DISORDER
     Dosage: 300 MG, UNK
     Dates: start: 20100101, end: 20100101

REACTIONS (18)
  - ACUTE PSYCHOSIS [None]
  - AGITATION [None]
  - COGNITIVE DISORDER [None]
  - DRUG TOLERANCE DECREASED [None]
  - EMOTIONAL DISORDER [None]
  - EXTRAPYRAMIDAL DISORDER [None]
  - HEAD TITUBATION [None]
  - HOSPITALISATION [None]
  - MENTAL IMPAIRMENT [None]
  - NO THERAPEUTIC RESPONSE [None]
  - PINEAL GERMINOMA [None]
  - PINEALOBLASTOMA [None]
  - PINEOCYTOMA [None]
  - PSYCHOTIC DISORDER [None]
  - SPEECH DISORDER [None]
  - STEREOTYPY [None]
  - TREATMENT FAILURE [None]
  - TREMOR [None]
